FAERS Safety Report 23681302 (Version 1)
Quarter: 2024Q1

REPORT INFORMATION
  Report Type: Spontaneous
  Country: IT (occurrence: IT)
  Receive Date: 20240328
  Receipt Date: 20240328
  Transmission Date: 20240410
  Serious: Yes (Hospitalization)
  Sender: FDA-Public Use
  Company Number: IT-MINISAL02-962267

PATIENT
  Age: 41 Year
  Sex: Male

DRUGS (13)
  1. MIDAZOLAM [Suspect]
     Active Substance: MIDAZOLAM
     Indication: Product used for unknown indication
     Dosage: 6 DOSAGE FORM, IN TOTAL
     Route: 030
     Dates: start: 20231204, end: 20231204
  2. MORPHINE [Suspect]
     Active Substance: MORPHINE
     Indication: Product used for unknown indication
     Dosage: 2 DOSAGE FORM, IN TOTAL, SOLUTION FOR INJECTION
     Route: 030
     Dates: start: 20231204, end: 20231204
  3. EN [Suspect]
     Active Substance: DELORAZEPAM
     Indication: Product used for unknown indication
     Dosage: 2 DOSAGE FORM
     Route: 030
     Dates: start: 20231204
  4. VALIUM [Suspect]
     Active Substance: DIAZEPAM
     Indication: Product used for unknown indication
     Dosage: 10 DOSAGE FORM
     Route: 040
     Dates: start: 20231204, end: 20231204
  5. CHLORPROMAZINE [Suspect]
     Active Substance: CHLORPROMAZINE
     Indication: Product used for unknown indication
     Dosage: 12 DOSAGE FORM
     Route: 048
     Dates: start: 20231204, end: 20231204
  6. BROMAZEPAM [Suspect]
     Active Substance: BROMAZEPAM
     Indication: Product used for unknown indication
     Dosage: 2 DOSAGE FORM
     Route: 048
     Dates: start: 20231204, end: 20231204
  7. LASIX [Concomitant]
     Active Substance: FUROSEMIDE
     Indication: Hypertension
     Dosage: UNK
     Route: 065
  8. FENTANYL CITRATE [Concomitant]
     Active Substance: FENTANYL CITRATE
     Indication: Pain
     Dosage: UNK
     Route: 065
  9. LYRICA [Concomitant]
     Active Substance: PREGABALIN
     Indication: Generalised anxiety disorder
     Dosage: UNK
     Route: 065
  10. ACETAMINOPHEN\OXYCODONE HYDROCHLORIDE [Concomitant]
     Active Substance: ACETAMINOPHEN\OXYCODONE HYDROCHLORIDE
     Indication: Pain
     Dosage: UNK
     Route: 065
  11. ARIXTRA [Concomitant]
     Active Substance: FONDAPARINUX SODIUM
     Indication: Thrombosis prophylaxis
     Dosage: UNK
     Route: 065
  12. MORPHINE SULFATE [Concomitant]
     Active Substance: MORPHINE SULFATE
     Indication: Pain
     Dosage: UNK
     Route: 065
  13. TAVOR [Concomitant]
     Indication: Pain
     Dosage: UNK
     Route: 065

REACTIONS (1)
  - Dyspraxia [Unknown]

NARRATIVE: CASE EVENT DATE: 20231204
